FAERS Safety Report 5366856-3 (Version None)
Quarter: 2007Q2

REPORT INFORMATION
  Report Type: 
  Country: None (occurrence: None)
  Receive Date: 20070622
  Receipt Date: 20061120
  Transmission Date: 20071010
  Serious: No
  Sender: FDA-Public Use
  Company Number: US-ASTRAZENECA-2006UW25616

PATIENT
  Age: 5 Year
  Sex: Male
  Weight: 24.9 kg

DRUGS (2)
  1. RHINOCORT [Suspect]
     Indication: HYPERSENSITIVITY
     Route: 045
  2. CRANTEX [Concomitant]

REACTIONS (1)
  - MUCOUS STOOLS [None]
